FAERS Safety Report 7075677-5 (Version None)
Quarter: 2010Q4

REPORT INFORMATION
  Report Type: 
  Country: None (occurrence: None)
  Receive Date: 20101031
  Receipt Date: 20101028
  Transmission Date: 20110411
  Serious: Yes (Hospitalization, Other)
  Sender: FDA-Public Use
  Company Number: US-WYE-H18436610

PATIENT
  Sex: Female
  Weight: 68.1 kg

DRUGS (13)
  1. PRISTIQ [Suspect]
     Indication: DEPRESSION
     Dates: start: 20100801, end: 20100901
  2. PRISTIQ [Suspect]
     Dates: start: 20100901, end: 20101005
  3. ACETYLSALICYLIC ACID SRT [Concomitant]
  4. XANAX [Suspect]
     Indication: ANXIETY
     Dosage: OVERDOSE AMOUNT WAS 75 TO 80 PILLS
     Route: 048
     Dates: start: 20101006, end: 20101006
  5. CRESTOR [Concomitant]
  6. SYMBICORT [Concomitant]
     Route: 055
  7. SYNTHROID [Concomitant]
  8. CALCIUM [Concomitant]
  9. ASCORBIC ACID/ERGOCALCIFEROL/FOLIC ACID/NICOTINAMIDE/PANTHENOL/RETINOL [Concomitant]
     Dosage: DAILY
  10. BONIVA [Concomitant]
  11. VITAMIN B-12 [Concomitant]
     Dosage: UNKNOWN
     Route: 030
  12. PLAVIX [Concomitant]
  13. LISINOPRIL [Concomitant]

REACTIONS (15)
  - ANXIETY [None]
  - BLOOD POTASSIUM DECREASED [None]
  - CONDITION AGGRAVATED [None]
  - DEHYDRATION [None]
  - DEPRESSION [None]
  - DYSPNOEA [None]
  - HEART RATE INCREASED [None]
  - INTENTIONAL OVERDOSE [None]
  - LOSS OF CONSCIOUSNESS [None]
  - MEMORY IMPAIRMENT [None]
  - PANIC ATTACK [None]
  - SOMNOLENCE [None]
  - SUICIDE ATTEMPT [None]
  - THINKING ABNORMAL [None]
  - UNEVALUABLE EVENT [None]
